FAERS Safety Report 4796473-5 (Version None)
Quarter: 2005Q4

REPORT INFORMATION
  Report Type: 
  Country: None (occurrence: None)
  Receive Date: 20051011
  Receipt Date: 20050615
  Transmission Date: 20060501
  Serious: Yes (Other)
  Sender: FDA-Public Use
  Company Number: 2005-06-0868

PATIENT

DRUGS (1)
  1. TEMODAR [Suspect]
     Dosage: 350 MG QDX5D ORAL
     Route: 048
     Dates: end: 20050521

REACTIONS (1)
  - PLATELET COUNT DECREASED [None]
